FAERS Safety Report 7689248-0 (Version None)
Quarter: 2011Q3

REPORT INFORMATION
  Report Type: 
  Country: None (occurrence: None)
  Receive Date: 20110817
  Receipt Date: 20110808
  Transmission Date: 20111222
  Serious: Yes (Hospitalization)
  Sender: FDA-Public Use
  Company Number: CA-JNJFOC-20101006347

PATIENT
  Sex: Male
  Weight: 61.23 kg

DRUGS (3)
  1. PREDNISONE [Concomitant]
  2. REMICADE [Suspect]
     Indication: CROHN'S DISEASE
     Route: 042
     Dates: start: 20100601, end: 20100701
  3. IMURAN [Concomitant]

REACTIONS (2)
  - INTESTINAL PERFORATION [None]
  - GASTROINTESTINAL INFLAMMATION [None]
